FAERS Safety Report 13031230 (Version 2)
Quarter: 2017Q1

REPORT INFORMATION
  Report Type: Spontaneous
  Country: DK (occurrence: DK)
  Receive Date: 20161215
  Receipt Date: 20170221
  Transmission Date: 20170428
  Serious: Yes (Life-Threatening, Hospitalization, Disabling, Congenital Anomaly)
  Sender: FDA-Public Use
  Company Number: DK-SA-2016SA220854

PATIENT
  Age: 10 Month
  Sex: Male
  Weight: 3.21 kg

DRUGS (6)
  1. LANTUS [Suspect]
     Active Substance: INSULIN GLARGINE
     Route: 063
     Dates: start: 20151008, end: 20151119
  2. IMADRAX [Concomitant]
     Active Substance: AMOXICILLIN
     Dates: start: 20150813, end: 20150820
  3. LANTUS [Suspect]
     Active Substance: INSULIN GLARGINE
     Route: 064
     Dates: start: 20150129, end: 20151008
  4. NOVORAPID [Suspect]
     Active Substance: INSULIN ASPART
     Route: 063
     Dates: start: 20151008, end: 20151119
  5. NOVORAPID [Suspect]
     Active Substance: INSULIN ASPART
     Route: 064
     Dates: start: 20150129, end: 20151008
  6. FOLIC ACID. [Concomitant]
     Active Substance: FOLIC ACID
     Dates: start: 20150423, end: 20151008

REACTIONS (18)
  - Renal aplasia [Not Recovered/Not Resolved]
  - Pneumonia [Recovered/Resolved]
  - Neonatal respiratory distress syndrome [Recovering/Resolving]
  - Foetal exposure during pregnancy [Unknown]
  - Nephrectomy [Recovered/Resolved]
  - Constipation [Recovered/Resolved]
  - Congenital intestinal malformation [Not Recovered/Not Resolved]
  - Sepsis neonatal [Recovered/Resolved]
  - Hypospadias [Not Recovered/Not Resolved]
  - Multiple congenital abnormalities [Unknown]
  - Pneumothorax [Recovered/Resolved]
  - Intestinal prolapse [Recovered/Resolved]
  - Congenital bladder anomaly [Not Recovered/Not Resolved]
  - Exposure during breast feeding [Unknown]
  - Ventricular septal defect [Not Recovered/Not Resolved]
  - Cystostomy [Recovered/Resolved]
  - Respiratory tract infection [Recovered/Resolved]
  - Premature baby [Recovered/Resolved]

NARRATIVE: CASE EVENT DATE: 20150129
